FAERS Safety Report 11728953 (Version 1)
Quarter: 2015Q4

REPORT INFORMATION
  Report Type: Spontaneous
  Country: US (occurrence: US)
  Receive Date: 20151112
  Receipt Date: 20151112
  Transmission Date: 20160304
  Serious: Yes (Other)
  Sender: FDA-Public Use
  Company Number: US-JNJFOC-20151106587

PATIENT
  Age: 50 Year
  Sex: Female
  Weight: 79.38 kg

DRUGS (1)
  1. RISPERDAL [Suspect]
     Active Substance: RISPERIDONE
     Indication: PRODUCT USED FOR UNKNOWN INDICATION
     Route: 048
     Dates: start: 20101220, end: 20101223

REACTIONS (3)
  - Myocardial infarction [Unknown]
  - Adverse event [Unknown]
  - Neoplasm skin [Recovered/Resolved]

NARRATIVE: CASE EVENT DATE: 201012
